FAERS Safety Report 11920362 (Version 1)
Quarter: 2016Q1

REPORT INFORMATION
  Report Type: Report from Study
  Country: JP (occurrence: JP)
  Receive Date: 20160115
  Receipt Date: 20160115
  Transmission Date: 20160526
  Serious: Yes (Death)
  Sender: FDA-Public Use
  Company Number: JP-OTSUKA-2016_001147

PATIENT
  Age: 69 Year
  Sex: Male

DRUGS (2)
  1. TOLVAPTAN [Suspect]
     Active Substance: TOLVAPTAN
     Indication: ASCITES
  2. TOLVAPTAN [Suspect]
     Active Substance: TOLVAPTAN
     Indication: HEPATIC CIRRHOSIS
     Dosage: UNK
     Route: 048

REACTIONS (1)
  - Death [Fatal]
